FAERS Safety Report 8267501-X (Version None)
Quarter: 2012Q2

REPORT INFORMATION
  Report Type: 
  Country: None (occurrence: None)
  Receive Date: 20120409
  Receipt Date: 20120329
  Transmission Date: 20120825
  Serious: Yes (Hospitalization, Other)
  Sender: FDA-Public Use
  Company Number: US-JNJFOC-20120202776

PATIENT
  Sex: Male
  Weight: 77.11 kg

DRUGS (1)
  1. REMICADE [Suspect]
     Indication: ANKYLOSING SPONDYLITIS
     Route: 042
     Dates: end: 20111001

REACTIONS (8)
  - ENTERITIS [None]
  - ARTHRITIS [None]
  - INTESTINAL OBSTRUCTION [None]
  - BODY HEIGHT DECREASED [None]
  - OBSTRUCTION [None]
  - INTESTINAL PERFORATION [None]
  - WEIGHT DECREASED [None]
  - HISTOPLASMOSIS [None]
